FAERS Safety Report 4700321-9 (Version None)
Quarter: 2005Q2

REPORT INFORMATION
  Report Type: 
  Country: None (occurrence: None)
  Receive Date: 20050627
  Receipt Date: 20050613
  Transmission Date: 20051028
  Serious: Yes (Hospitalization)
  Sender: FDA-Public Use
  Company Number: US-AMGEN-US138993

PATIENT
  Age: 68 Year
  Sex: Female

DRUGS (3)
  1. PROCRIT [Suspect]
     Indication: RENAL FAILURE CHRONIC
     Route: 058
     Dates: start: 20010101
  2. LEVOTHYROXINE SODIUM [Concomitant]
  3. INSULIN [Concomitant]

REACTIONS (9)
  - ABDOMINAL PAIN [None]
  - ASTHENIA [None]
  - BACK PAIN [None]
  - HAEMOGLOBIN DECREASED [None]
  - HEADACHE [None]
  - LABILE BLOOD PRESSURE [None]
  - TRANSFUSION REACTION [None]
  - TREMOR [None]
  - VOMITING [None]
